FAERS Safety Report 7592794-1 (Version None)
Quarter: 2011Q3

REPORT INFORMATION
  Report Type: 
  Country: None (occurrence: None)
  Receive Date: 20110706
  Receipt Date: 20110630
  Transmission Date: 20111222
  Serious: No
  Sender: FDA-Public Use
  Company Number: US-PFIZER INC-2011146839

PATIENT
  Sex: Male
  Weight: 75.737 kg

DRUGS (3)
  1. SUTENT [Suspect]
     Dosage: 50 MG, 1X/DAY
     Route: 048
  2. SILODOSIN [Concomitant]
     Dosage: 8 MG, UNK
  3. OMEPRAZOLE [Concomitant]
     Dosage: 40 MG, UNK

REACTIONS (2)
  - FATIGUE [None]
  - DIZZINESS [None]
